FAERS Safety Report 4762451-5 (Version None)
Quarter: 2005Q3

REPORT INFORMATION
  Report Type: 
  Country: None (occurrence: None)
  Receive Date: 20050907
  Receipt Date: 20050905
  Transmission Date: 20060218
  Serious: Yes (Life-Threatening, Hospitalization)
  Sender: FDA-Public Use
  Company Number: 2005GB01701

PATIENT
  Age: 67 Year
  Sex: Male

DRUGS (2)
  1. CO-TENIDONE [Suspect]
     Indication: HYPERTENSION
     Dosage: 12.5/50 MG
     Route: 048
     Dates: start: 20041101
  2. METFORMIN [Concomitant]
     Indication: DIABETES MELLITUS
     Route: 048
     Dates: end: 20040101

REACTIONS (1)
  - DERMATITIS EXFOLIATIVE [None]
